FAERS Safety Report 7136961-X (Version None)
Quarter: 2010Q4

REPORT INFORMATION
  Report Type: 
  Country: None (occurrence: None)
  Receive Date: 20101206
  Receipt Date: 20090415
  Transmission Date: 20110411
  Serious: Yes (Other)
  Sender: FDA-Public Use
  Company Number: FR-CELGENEUS-056-21880-10110934

PATIENT
  Age: 73 Year
  Sex: Male

DRUGS (3)
  1. REVLIMID [Suspect]
     Indication: MULTIPLE MYELOMA
     Route: 048
     Dates: start: 20080515
  2. REVLIMID [Suspect]
     Route: 048
     Dates: end: 20090115
  3. DEXAMETHASONE [Suspect]
     Indication: MULTIPLE MYELOMA
     Route: 065
     Dates: start: 20080515, end: 20090115

REACTIONS (3)
  - DISEASE PROGRESSION [None]
  - HAEMATOTOXICITY [None]
  - MULTIPLE MYELOMA [None]
